FAERS Safety Report 8707811 (Version 2)
Quarter: 2013Q4

REPORT INFORMATION
  Report Type: Spontaneous
  Country: US (occurrence: US)
  Receive Date: 20120806
  Receipt Date: 20131003
  Transmission Date: 20140711
  Serious: No
  Sender: FDA-Public Use
  Company Number: US-009507513-1206USA02607

PATIENT
  Age: 56 Year
  Sex: Male
  Weight: 93.42 kg

DRUGS (4)
  1. MAXALT [Suspect]
     Indication: MIGRAINE
     Dosage: UNK MG, UNK
     Route: 048
  2. MAXALT MLT [Suspect]
     Indication: MIGRAINE
     Dosage: 20 MG, PRN
     Route: 048
     Dates: start: 201106
  3. TOPAMAX [Concomitant]
  4. LIPITOR [Concomitant]

REACTIONS (6)
  - Abdominal pain upper [Recovered/Resolved]
  - Wrong technique in drug usage process [Unknown]
  - Product label confusion [Unknown]
  - Drug ineffective [Unknown]
  - Vomiting [Recovered/Resolved]
  - Throat irritation [Recovered/Resolved]
